FAERS Safety Report 13876056 (Version 2)
Quarter: 2017Q4

REPORT INFORMATION
  Report Type: Spontaneous
  Country: US (occurrence: US)
  Receive Date: 20170817
  Receipt Date: 20171108
  Transmission Date: 20180320
  Serious: No
  Sender: FDA-Public Use
  Company Number: US-PFIZER INC-2017351170

PATIENT
  Age: 81 Year
  Sex: Female

DRUGS (12)
  1. ATORVASTATIN [Concomitant]
     Active Substance: ATORVASTATIN
     Indication: CARDIAC DISORDER
     Dosage: 20 MG, 1X/DAY
     Route: 048
  2. ASPIRIN. [Concomitant]
     Active Substance: ASPIRIN
     Indication: CARDIAC DISORDER
     Dosage: 81 MG, 1X/DAY
     Dates: start: 2017
  3. JANUVIA [Concomitant]
     Active Substance: SITAGLIPTIN PHOSPHATE
     Indication: BLOOD GLUCOSE ABNORMAL
     Dosage: 50 MG, 1X/DAY
     Route: 048
  4. ZYRTEC [Concomitant]
     Active Substance: CETIRIZINE HYDROCHLORIDE
     Indication: HYPERSENSITIVITY
     Dosage: 10 MG, 1X/DAY
     Route: 048
  5. SUTENT [Suspect]
     Active Substance: SUNITINIB MALATE
     Indication: GASTROINTESTINAL STROMAL TUMOUR
     Dosage: 12.5 MG, CYCLIC (DAILY FOR 2 WEEKS ON AND 1 WEEK OFF)
  6. METOPROLOL. [Concomitant]
     Active Substance: METOPROLOL
     Indication: HEART RATE ABNORMAL
     Dosage: 50 MG, 1X/DAY
     Route: 048
     Dates: start: 2017
  7. SUTENT [Suspect]
     Active Substance: SUNITINIB MALATE
     Dosage: 12.5 MG, CYCLIC (12.5 MG ONE PILL 3 TIMES A DAY FOR 3 DAYS A WEEK)
     Dates: start: 2015, end: 2016
  8. PANTOPRAZOLE [Concomitant]
     Active Substance: PANTOPRAZOLE
     Indication: DYSPEPSIA
     Dosage: 20 MG, 1X/DAY
     Route: 048
  9. SUTENT [Suspect]
     Active Substance: SUNITINIB MALATE
     Dosage: 12.5 MG, CYCLIC (1 PILL ONCE A DAY FOR 1 WEEK, REST ONE WEEK, AND THEN REPEAT)
     Dates: start: 2017
  10. TYLENOL [Concomitant]
     Active Substance: ACETAMINOPHEN
     Indication: HEADACHE
     Dosage: UNK, AS NEEDED
     Route: 048
  11. AMLODIPINE;HYDROCHLOROTHIAZIDE;OLMESARTAN [Concomitant]
     Indication: CARDIAC DISORDER
     Dosage: UNK, 1X/DAY (AMLODIPINE 40-HYDROCHLOROTHIAZIDE 5- OLMESARTAN 12.5)
     Route: 048
  12. SYNTHROID [Concomitant]
     Active Substance: LEVOTHYROXINE SODIUM
     Indication: THYROID DISORDER
     Dosage: 75 UG, 1X/DAY
     Route: 048

REACTIONS (2)
  - Neoplasm progression [Unknown]
  - Heart rate increased [Unknown]

NARRATIVE: CASE EVENT DATE: 2017
